FAERS Safety Report 6596815-4 (Version None)
Quarter: 2010Q1

REPORT INFORMATION
  Report Type: 
  Country: None (occurrence: None)
  Receive Date: 20100223
  Receipt Date: 20100119
  Transmission Date: 20100710
  Serious: Yes (Other)
  Sender: FDA-Public Use
  Company Number: CA-PFIZER INC-2010018480

PATIENT

DRUGS (6)
  1. CHAMPIX [Suspect]
  2. ESTROGEL [Concomitant]
     Dosage: UNK
  3. ASPIRIN [Concomitant]
     Dosage: UNK
  4. VITAMIN B6 [Concomitant]
     Dosage: UNK
  5. VITAMIN B-12 [Concomitant]
     Dosage: UNK
  6. FOLIC ACID [Concomitant]
     Dosage: UNK

REACTIONS (4)
  - ANXIETY [None]
  - DEPRESSION [None]
  - FEAR [None]
  - MOOD ALTERED [None]
